FAERS Safety Report 8720606 (Version 1)
Quarter: 2012Q4

REPORT INFORMATION
  Report Type: 
  Country: US (occurrence: US)
  Receive Date: 20120910
  Receipt Date: 20120910
  Transmission Date: 20130627
  Serious: Yes (Hospitalization)
  Sender: FDA-Public Use
  Company Number: US-ROCHE-1099260

PATIENT
  Age: 34 Year
  Sex: Male

DRUGS (1)
  1. ACTIVASE [Suspect]
     Indication: ACUTE MYOCARDIAL INFARCTION
     Route: 065

REACTIONS (6)
  - Bradycardia [Unknown]
  - Nausea [Unknown]
  - Sinus tachycardia [Unknown]
  - Supraventricular extrasystoles [Unknown]
  - Pallor [Unknown]
  - Electrocardiogram T wave peaked [Unknown]
